FAERS Safety Report 13640968 (Version 1)
Quarter: 2017Q2

REPORT INFORMATION
  Report Type: Spontaneous
  Country: US (occurrence: US)
  Receive Date: 20170612
  Receipt Date: 20170612
  Transmission Date: 20170830
  Serious: No
  Sender: FDA-Public Use
  Company Number: US-TEVA-753346USA

PATIENT
  Sex: Female

DRUGS (1)
  1. ENOXAPARIN [Suspect]
     Active Substance: ENOXAPARIN
     Dosage: 100 MG/1 ML
     Route: 065

REACTIONS (3)
  - Injection site injury [Unknown]
  - Device malfunction [Unknown]
  - Underdose [Unknown]
